FAERS Safety Report 7386925-6 (Version None)
Quarter: 2011Q1

REPORT INFORMATION
  Report Type: 
  Country: None (occurrence: None)
  Receive Date: 20110331
  Receipt Date: 20110316
  Transmission Date: 20110831
  Serious: Yes (Death, Other)
  Sender: FDA-Public Use
  Company Number: CH-BIOGENIDEC-2011BI011714

PATIENT
  Sex: Female

DRUGS (3)
  1. CLONAZEPAM [Concomitant]
     Route: 064
  2. TYSABRI [Suspect]
     Indication: PRODUCT USED FOR UNKNOWN INDICATION
     Route: 064
  3. VENTOLIN [Concomitant]
     Route: 064

REACTIONS (2)
  - INTRA-UTERINE DEATH [None]
  - MACROSOMIA [None]
